FAERS Safety Report 18387093 (Version 1)
Quarter: 2020Q4

REPORT INFORMATION
  Report Type: Spontaneous
  Country: US (occurrence: US)
  Receive Date: 20201015
  Receipt Date: 20201015
  Transmission Date: 20210114
  Serious: No
  Sender: FDA-Public Use
  Company Number: None

PATIENT
  Age: 44 Year
  Sex: Male
  Weight: 79 kg

DRUGS (7)
  1. DEXAMETHASONE IV [Concomitant]
     Active Substance: DEXAMETHASONE
     Dates: start: 20201009
  2. VITAMIN D 5000 UNITS [Concomitant]
     Dates: start: 20201012
  3. ZINC 220 MG PO [Concomitant]
     Dates: start: 20201010
  4. MAGENSIUM 2 GM IV [Concomitant]
     Dates: start: 20201010, end: 20201010
  5. FAMOTIDINE 20 MG PO [Concomitant]
     Dates: start: 20201010
  6. REMDESIVIR. [Suspect]
     Active Substance: REMDESIVIR
     Indication: COVID-19
     Route: 042
     Dates: start: 20201010, end: 20201014
  7. ASCORBIC ACID 500 MG PO [Concomitant]
     Dates: start: 20201010, end: 20201013

REACTIONS (2)
  - Aspartate aminotransferase increased [None]
  - Alanine aminotransferase increased [None]

NARRATIVE: CASE EVENT DATE: 20201013
